FAERS Safety Report 7028473-9 (Version None)
Quarter: 2010Q4

REPORT INFORMATION
  Report Type: 
  Country: None (occurrence: None)
  Receive Date: 20101001
  Receipt Date: 20101001
  Transmission Date: 20110411
  Serious: Yes (Hospitalization)
  Sender: FDA-Public Use
  Company Number: None

PATIENT
  Age: 62 Year
  Sex: Female
  Weight: 109 kg

DRUGS (1)
  1. HYDROMORPHONE HCL [Suspect]
     Dosage: 1 MG ONCE IV
     Route: 042
     Dates: start: 20100902

REACTIONS (1)
  - CHEST PAIN [None]
